FAERS Safety Report 20881204 (Version 1)
Quarter: 2022Q2

REPORT INFORMATION
  Report Type: Spontaneous
  Country: US (occurrence: US)
  Receive Date: 20220526
  Receipt Date: 20220526
  Transmission Date: 20220721
  Serious: No
  Sender: FDA-Public Use
  Company Number: US-RADIUS HEALTH INC.-2022US001066

PATIENT
  Sex: Female

DRUGS (1)
  1. TYMLOS [Suspect]
     Active Substance: ABALOPARATIDE
     Indication: Osteoporosis
     Dosage: 80 MCG, QD
     Route: 058
     Dates: start: 20220219, end: 20220304

REACTIONS (5)
  - Urticaria [Recovering/Resolving]
  - Rash erythematous [Recovering/Resolving]
  - Blister [Recovering/Resolving]
  - Nasal mucosal blistering [Recovering/Resolving]
  - Periorbital oedema [Recovered/Resolved]
